FAERS Safety Report 21502529 (Version 1)
Quarter: 2022Q4

REPORT INFORMATION
  Report Type: Spontaneous
  Country: US (occurrence: US)
  Receive Date: 20221025
  Receipt Date: 20221025
  Transmission Date: 20230113
  Serious: Yes (Other)
  Sender: FDA-Public Use
  Company Number: US-drreddys-LIT/USA/22/0156306

PATIENT
  Age: 7 Year
  Sex: Female

DRUGS (2)
  1. SIROLIMUS [Suspect]
     Active Substance: SIROLIMUS
     Indication: Lymphangioma
  2. SIROLIMUS [Suspect]
     Active Substance: SIROLIMUS
     Dosage: TAPERED DOWN OVER THE PERIOD OF 3 MONTHS

REACTIONS (3)
  - Stomatitis [Unknown]
  - Infection [Unknown]
  - Product use in unapproved indication [Unknown]
